FAERS Safety Report 6684816-7 (Version None)
Quarter: 2010Q2

REPORT INFORMATION
  Report Type: 
  Country: None (occurrence: None)
  Receive Date: 20100416
  Receipt Date: 20100402
  Transmission Date: 20101027
  Serious: Yes (Disabling, Other)
  Sender: FDA-Public Use
  Company Number: JP-GENENTECH-298442

PATIENT
  Sex: Female

DRUGS (1)
  1. RANIBIZUMAB [Suspect]
     Indication: MACULAR DEGENERATION
     Dosage: 0.05 ML, QD
     Route: 031
     Dates: start: 20090703

REACTIONS (4)
  - DETACHMENT OF RETINAL PIGMENT EPITHELIUM [None]
  - RETINAL HAEMORRHAGE [None]
  - RETINAL SCAR [None]
  - VISUAL ACUITY REDUCED [None]
